FAERS Safety Report 9834122 (Version 1)
Quarter: 2014Q1

REPORT INFORMATION
  Report Type: Spontaneous
  Country: US (occurrence: US)
  Receive Date: 20140122
  Receipt Date: 20140122
  Transmission Date: 20141002
  Serious: No
  Sender: FDA-Public Use
  Company Number: US-009507513-1401USA003841

PATIENT
  Age: 57 Year
  Sex: Male

DRUGS (2)
  1. PEGINTRON [Suspect]
     Indication: HEPATITIS C
     Dosage: 0.5 CC, QW
     Route: 058
     Dates: start: 20131115
  2. REBETOL [Suspect]
     Indication: HEPATITIS C
     Dosage: 1000 MG/D, BID
     Route: 048
     Dates: start: 20131115

REACTIONS (9)
  - Burnout syndrome [Unknown]
  - Rash [Unknown]
  - Pruritus [Unknown]
  - Decreased appetite [Unknown]
  - Night sweats [Unknown]
  - Chills [Unknown]
  - Nausea [Unknown]
  - Dizziness [Unknown]
  - Asthenia [Unknown]
